FAERS Safety Report 12544985 (Version 1)
Quarter: 2016Q3

REPORT INFORMATION
  Report Type: Report from Study
  Country: FR (occurrence: FR)
  Receive Date: 20160711
  Receipt Date: 20160711
  Transmission Date: 20161109
  Serious: Yes (Hospitalization, Disabling)
  Sender: FDA-Public Use
  Company Number: FR-JNJFOC-20160112303

PATIENT
  Age: 62 Year
  Sex: Male
  Weight: 75 kg

DRUGS (23)
  1. METFORMINE [Concomitant]
     Active Substance: METFORMIN HYDROCHLORIDE
     Indication: TYPE 2 DIABETES MELLITUS
     Dosage: 100 MG IN MORNING AND 50 MG IN EVENING
     Route: 065
  2. KARDEGIC [Concomitant]
     Active Substance: ASPIRIN LYSINE
     Indication: ISCHAEMIC CARDIOMYOPATHY
     Dosage: 100 MG IN MORNING AND 50 MG IN EVENING
     Route: 048
  3. SIMPONI [Suspect]
     Active Substance: GOLIMUMAB
     Indication: RHEUMATOID ARTHRITIS
     Route: 058
     Dates: start: 20150503
  4. NAPROXEN SODIUM. [Concomitant]
     Active Substance: NAPROXEN SODIUM
     Route: 065
  5. TRAMADOL. [Concomitant]
     Active Substance: TRAMADOL
     Dosage: 100 MG IN MORNING AND 50 MG IN EVENING
     Route: 065
  6. KARDEGIC [Concomitant]
     Active Substance: ASPIRIN LYSINE
     Indication: MYOCARDIAL INFARCTION
     Dosage: 100 MG IN MORNING AND 50 MG IN EVENING
     Route: 048
  7. SIMPONI [Suspect]
     Active Substance: GOLIMUMAB
     Indication: PSORIATIC ARTHROPATHY
     Route: 058
     Dates: start: 20160307, end: 20160411
  8. CRESTOR [Concomitant]
     Active Substance: ROSUVASTATIN CALCIUM
     Indication: HYPERCHOLESTEROLAEMIA
     Dosage: 100 MG IN MORNING AND 50 MG IN EVENING
     Route: 048
  9. CELIPROLOL [Concomitant]
     Active Substance: CELIPROLOL
     Indication: MYOCARDIAL INFARCTION
     Dosage: 100 MG IN MORNING AND 50 MG IN EVENING
     Route: 048
  10. CITALOPRAM [Concomitant]
     Active Substance: CITALOPRAM HYDROBROMIDE
     Indication: DEPRESSION
     Route: 065
  11. SIMPONI [Suspect]
     Active Substance: GOLIMUMAB
     Indication: PSORIATIC ARTHROPATHY
     Route: 058
     Dates: start: 20150416
  12. SIMPONI [Suspect]
     Active Substance: GOLIMUMAB
     Indication: RHEUMATOID ARTHRITIS
     Route: 058
     Dates: start: 20160307, end: 20160411
  13. CELIPROLOL [Concomitant]
     Active Substance: CELIPROLOL
     Indication: ISCHAEMIC CARDIOMYOPATHY
     Dosage: 100 MG IN MORNING AND 50 MG IN EVENING
     Route: 048
  14. SIMPONI [Suspect]
     Active Substance: GOLIMUMAB
     Indication: PSORIATIC ARTHROPATHY
     Route: 058
     Dates: start: 20151204
  15. SIMPONI [Suspect]
     Active Substance: GOLIMUMAB
     Indication: PSORIATIC ARTHROPATHY
     Route: 058
     Dates: start: 20150503
  16. BROMAZEPAM [Concomitant]
     Active Substance: BROMAZEPAM
     Indication: DEPRESSION
     Route: 048
  17. SIMPONI [Suspect]
     Active Substance: GOLIMUMAB
     Indication: RHEUMATOID ARTHRITIS
     Route: 058
     Dates: start: 20151204
  18. SIMPONI [Suspect]
     Active Substance: GOLIMUMAB
     Indication: RHEUMATOID ARTHRITIS
     Route: 058
     Dates: start: 20150416
  19. CRESTOR [Concomitant]
     Active Substance: ROSUVASTATIN CALCIUM
     Indication: DYSLIPIDAEMIA
     Dosage: 100 MG IN MORNING AND 50 MG IN EVENING
     Route: 048
  20. OXEOL [Concomitant]
     Active Substance: BAMBUTEROL HYDROCHLORIDE
     Indication: CHRONIC OBSTRUCTIVE PULMONARY DISEASE
     Route: 048
  21. APROVEL [Concomitant]
     Active Substance: IRBESARTAN
     Indication: HYPERTENSION
     Route: 065
  22. LEVOTHYROX [Concomitant]
     Active Substance: LEVOTHYROXINE
     Indication: HYPOTHYROIDISM
     Route: 048
  23. VASTAREL [Concomitant]
     Active Substance: TRIMETAZIDINE DIHYDROCHLORIDE
     Indication: TINNITUS
     Route: 048

REACTIONS (8)
  - Nuclear magnetic resonance imaging brain abnormal [Not Recovered/Not Resolved]
  - Adverse event [Recovered/Resolved]
  - Umbilical hernia [Recovered/Resolved]
  - Balance disorder [Recovered/Resolved]
  - Dizziness [Unknown]
  - Bronchitis [Unknown]
  - Inappropriate schedule of drug administration [Unknown]
  - Demyelination [Unknown]

NARRATIVE: CASE EVENT DATE: 201602
